FAERS Safety Report 5978127-2 (Version None)
Quarter: 2008Q4

REPORT INFORMATION
  Report Type: 
  Country: None (occurrence: None)
  Receive Date: 20081204
  Receipt Date: 20081125
  Transmission Date: 20090506
  Serious: No
  Sender: FDA-Public Use
  Company Number: JP-SP-2008-03576

PATIENT
  Age: 57 Year
  Sex: Male

DRUGS (6)
  1. IMMUCYST [Suspect]
     Indication: BLADDER CANCER
     Route: 043
     Dates: start: 20080530, end: 20080711
  2. NIFEDIPINE [Concomitant]
  3. AMLODIPINE BESYLATE [Concomitant]
  4. NAFTOPIDIL [Concomitant]
  5. PIPSISSEWA  EXTRACT JAPANESE ASPEN EXTRACT COMBINED DRUG [Concomitant]
  6. CHOREI-TO [Concomitant]

REACTIONS (3)
  - ABDOMINAL PAIN LOWER [None]
  - CYSTITIS [None]
  - DYSURIA [None]
